FAERS Safety Report 11823698 (Version 1)
Quarter: 2015Q4

REPORT INFORMATION
  Report Type: Spontaneous
  Country: US (occurrence: US)
  Receive Date: 20151210
  Receipt Date: 20151210
  Transmission Date: 20160305
  Serious: No
  Sender: FDA-Public Use
  Company Number: US-LPDUSPRD-20150609

PATIENT
  Age: 65 Year
  Sex: Female

DRUGS (1)
  1. VENOFER [Suspect]
     Active Substance: IRON SUCROSE
     Dosage: 300 MG/250 ML NS
     Route: 042
     Dates: start: 20150811, end: 20150811

REACTIONS (1)
  - Infusion site erythema [Recovering/Resolving]

NARRATIVE: CASE EVENT DATE: 20150812
